FAERS Safety Report 6460736-8 (Version None)
Quarter: 2009Q4

REPORT INFORMATION
  Report Type: 
  Country: None (occurrence: None)
  Receive Date: 20091130
  Receipt Date: 20091116
  Transmission Date: 20100525
  Serious: Yes (Death, Hospitalization)
  Sender: FDA-Public Use
  Company Number: ZA-SANOFI-AVENTIS-2009SA003763

PATIENT
  Age: 78 Year
  Sex: Male

DRUGS (23)
  1. DOCETAXEL [Suspect]
     Indication: PROSTATE CANCER
     Route: 041
     Dates: start: 20090406, end: 20090821
  2. INVESTIGATIONAL DRUG [Suspect]
     Indication: PROSTATE CANCER
     Route: 048
     Dates: start: 20090406, end: 20090914
  3. PREDNISONE [Suspect]
     Indication: PROSTATE CANCER
     Dates: start: 20090406, end: 20090914
  4. DEXAMETHASONE TAB [Suspect]
     Indication: PREMEDICATION
  5. LENTOGESIC /01057301/ [Suspect]
     Indication: PAIN
     Dates: start: 20090817, end: 20090903
  6. ATORVASTATIN [Concomitant]
     Dates: start: 20010101, end: 20090914
  7. WARFARIN SODIUM [Concomitant]
     Dates: start: 20010101, end: 20090908
  8. CONCOR [Concomitant]
     Dates: start: 20010101, end: 20090913
  9. INDAPAMIDE/PERINDOPRIL ERBUMINE [Concomitant]
     Dates: start: 20081015, end: 20090914
  10. LASIX [Concomitant]
     Dates: start: 20090811, end: 20090914
  11. POTASSIUM [Concomitant]
  12. SLOW-K [Concomitant]
     Dates: start: 20090811, end: 20090914
  13. IPRATROPIUM BROMIDE/SALBUTAMOL SULFATE [Concomitant]
     Dates: start: 20090912, end: 20090914
  14. BISOLVON [Concomitant]
     Dates: start: 20090912, end: 20090914
  15. NORMISON [Concomitant]
     Dates: start: 20090904, end: 20090913
  16. ENOXAPARIN SODIUM [Concomitant]
     Dates: start: 20090905, end: 20090913
  17. ROCEPHIN [Concomitant]
     Dates: start: 20090909, end: 20090913
  18. MAXOLON [Concomitant]
     Dates: start: 20090909, end: 20090914
  19. ESOMEPRAZOLE [Concomitant]
     Dates: start: 20090914, end: 20090914
  20. PURICOS [Concomitant]
     Dates: start: 20090822, end: 20090913
  21. FRESUBIN [Concomitant]
     Dates: start: 20090905, end: 20090913
  22. RINGER'S [Concomitant]
     Dates: start: 20090914, end: 20090915
  23. NORMAL SALINE [Concomitant]
     Dates: start: 20090909, end: 20090915

REACTIONS (4)
  - CARDIAC FAILURE [None]
  - CONSTIPATION [None]
  - FALL [None]
  - GASTROINTESTINAL HAEMORRHAGE [None]
